FAERS Safety Report 13440586 (Version 2)
Quarter: 2017Q2

REPORT INFORMATION
  Report Type: Spontaneous
  Country: US (occurrence: US)
  Receive Date: 20170413
  Receipt Date: 20170413
  Transmission Date: 20170830
  Serious: No
  Sender: FDA-Public Use
  Company Number: US-ASTELLAS-2017US000278

PATIENT
  Age: 54 Year
  Sex: Female

DRUGS (2)
  1. PROGRAF [Suspect]
     Active Substance: TACROLIMUS\TACROLIMUS ANHYDROUS
     Indication: RENAL TRANSPLANT
     Dosage: 1.5 MG, TWICE DAILY (COMBINATION OF 0.5 MG AND 1 MG CAPSULE)
     Route: 048
     Dates: start: 20160713
  2. PROGRAF [Suspect]
     Active Substance: TACROLIMUS\TACROLIMUS ANHYDROUS
     Indication: RENAL TRANSPLANT
     Dosage: 1.5 MG, TWICE DAILY (COMBINATION OF 0.5 MG AND 1 MG CAPSULE)
     Route: 048
     Dates: start: 20160713

REACTIONS (2)
  - Dizziness [Recovered/Resolved]
  - Arthralgia [Unknown]

NARRATIVE: CASE EVENT DATE: 20161202
